FAERS Safety Report 6359014-7 (Version None)
Quarter: 2009Q3

REPORT INFORMATION
  Report Type: 
  Country: None (occurrence: None)
  Receive Date: 20090917
  Receipt Date: 20090910
  Transmission Date: 20100115
  Serious: Yes (Other)
  Sender: FDA-Public Use
  Company Number: US-JNJCH-2009024375

PATIENT
  Age: 43 Year
  Sex: Male
  Weight: 77.1 kg

DRUGS (1)
  1. VISINE EYE DROPS [Suspect]
     Indication: HYPERSENSITIVITY
     Dosage: TEXT:TWO DROPS IN EACH EYE ONE TIME
     Route: 047
     Dates: start: 20090902, end: 20090902

REACTIONS (1)
  - VISUAL IMPAIRMENT [None]
